FAERS Safety Report 10721610 (Version 2)
Quarter: 2015Q1

REPORT INFORMATION
  Report Type: Report from Study
  Country: US (occurrence: US)
  Receive Date: 20150119
  Receipt Date: 20150206
  Transmission Date: 20150721
  Serious: Yes (Other)
  Sender: FDA-Public Use
  Company Number: PHEH2014US014133

PATIENT
  Sex: Male
  Weight: 65.59 kg

DRUGS (9)
  1. GLEEVEC [Suspect]
     Active Substance: IMATINIB MESYLATE
     Indication: CHRONIC MYELOID LEUKAEMIA
     Dosage: 600 MG, QD
     Route: 047
     Dates: start: 201010
  2. MULTI VITAMIN [Concomitant]
     Active Substance: VITAMINS
     Indication: PRODUCT USED FOR UNKNOWN INDICATION
     Route: 048
  3. VIT. E [Concomitant]
     Indication: PRODUCT USED FOR UNKNOWN INDICATION
     Dosage: 1 DF, QD
     Route: 048
  4. GLEEVEC [Suspect]
     Active Substance: IMATINIB MESYLATE
     Dosage: 600 MG (1 TAB 400 MG AND 2 TAB 100 MG QD)
     Route: 048
     Dates: start: 2012, end: 201207
  5. DILAUDID [Concomitant]
     Active Substance: HYDROMORPHONE HYDROCHLORIDE
     Indication: PAIN
     Dosage: 1 DF, PRN
     Route: 065
  6. TESTOSTERONE CYPIONATE. [Concomitant]
     Active Substance: TESTOSTERONE CYPIONATE
     Indication: PRODUCT USED FOR UNKNOWN INDICATION
     Dosage: 1 DF, EVERY FOURTEEN DAYS
     Route: 048
  7. SPRYCEL [Concomitant]
     Active Substance: DASATINIB
     Indication: CHRONIC MYELOID LEUKAEMIA
     Dosage: 100 MG, QD
     Route: 048
     Dates: start: 201209, end: 201405
  8. GLEEVEC [Suspect]
     Active Substance: IMATINIB MESYLATE
     Dosage: 600 MG (1 TAB 400 MG AND 2 TAB 100 MG QD)
     Route: 048
  9. ZOFRAN [Concomitant]
     Active Substance: ONDANSETRON HYDROCHLORIDE
     Indication: PRODUCT USED FOR UNKNOWN INDICATION
     Dosage: 1 DF(4 MG), EVERY EIGHT HOURS PRN
     Route: 048

REACTIONS (23)
  - Back injury [Unknown]
  - Depression [Unknown]
  - Aspartate aminotransferase increased [Unknown]
  - Muscle spasms [Unknown]
  - Myelitis transverse [Unknown]
  - Pruritus [Unknown]
  - Extradural abscess [Unknown]
  - Cauda equina syndrome [Unknown]
  - Cellulitis [Unknown]
  - Scrotal swelling [Unknown]
  - Purpura [Unknown]
  - Back pain [Not Recovered/Not Resolved]
  - Neutrophil count increased [Unknown]
  - Blood glucose increased [Unknown]
  - Red cell distribution width increased [Unknown]
  - Blood pressure increased [Unknown]
  - Incorrect route of drug administration [Unknown]
  - Intervertebral disc degeneration [Unknown]
  - Skin swelling [Unknown]
  - Pain [Unknown]
  - Rash maculo-papular [Unknown]
  - Pain in extremity [Unknown]
  - Fatigue [Unknown]
